FAERS Safety Report 10038095 (Version 1)
Quarter: 2014Q1

REPORT INFORMATION
  Report Type: Spontaneous
  Country: US (occurrence: None)
  Receive Date: 20140325
  Receipt Date: 20140325
  Transmission Date: 20141002
  Serious: Yes (Other)
  Sender: FDA-Public Use
  Company Number: None

PATIENT
  Age: 58 Year
  Sex: Female

DRUGS (8)
  1. MARCAINE [Suspect]
     Indication: SPINAL ANAESTHESIA
     Route: 037
  2. ANCE [Concomitant]
  3. MIDAZOLAM [Concomitant]
  4. ONDANSETRON [Concomitant]
  5. FENTANYL [Concomitant]
  6. PROPOFOL [Concomitant]
  7. ROPIVACAINE [Concomitant]
  8. DEXTROSE [Suspect]

REACTIONS (1)
  - Drug ineffective [None]
